FAERS Safety Report 16270411 (Version 2)
Quarter: 2019Q2

REPORT INFORMATION
  Report Type: Spontaneous
  Country: US (occurrence: US)
  Receive Date: 20190503
  Receipt Date: 20190528
  Transmission Date: 20190711
  Serious: Yes (Death)
  Sender: FDA-Public Use
  Company Number: US-PFIZER INC-2019187960

PATIENT
  Age: 45 Year
  Sex: Male
  Weight: 145.13 kg

DRUGS (4)
  1. PHENERGAN [Suspect]
     Active Substance: PROMETHAZINE HYDROCHLORIDE
     Indication: SEDATIVE THERAPY
     Dosage: 25 MG (REPEATED AFTER 3H)
  2. MEPERIDINE HCL [Suspect]
     Active Substance: MEPERIDINE HYDROCHLORIDE
     Indication: SEDATIVE THERAPY
     Dosage: 100 MG, UNK, (INTRAMUSCULAR INJECTION) (REPEATED 3 HOURS LATER)
     Route: 030
  3. MEPERIDINE HCL [Suspect]
     Active Substance: MEPERIDINE HYDROCHLORIDE
     Indication: PAIN MANAGEMENT
  4. PHENERGAN [Suspect]
     Active Substance: PROMETHAZINE HYDROCHLORIDE
     Indication: PAIN MANAGEMENT

REACTIONS (1)
  - Cardiac arrest [Fatal]
